FAERS Safety Report 10339510 (Version 1)
Quarter: 2014Q3

REPORT INFORMATION
  Report Type: Spontaneous
  Country: JP (occurrence: None)
  Receive Date: 20140722
  Receipt Date: 20140722
  Transmission Date: 20150326
  Serious: No
  Sender: FDA-Public Use
  Company Number: B0925833A

PATIENT
  Age: 52 Year
  Sex: Male

DRUGS (3)
  1. PAROXETINE HYDROCHLORIDE TABLET (PAROXETINE HYDROCHLORIDE) [Suspect]
     Active Substance: PAROXETINE HYDROCHLORIDE
     Route: 048
  2. PAROXETINE HYDROCHLORIDE TABLET (PAROXETINE HYDROCHLORIDE) [Suspect]
     Active Substance: PAROXETINE HYDROCHLORIDE
  3. PARACETAMOL [Concomitant]
     Active Substance: ACETAMINOPHEN

REACTIONS (9)
  - Hypercalcaemia [None]
  - Tremor [None]
  - Liver disorder [None]
  - Delirium [None]
  - Hepatic function abnormal [None]
  - Serotonin syndrome [None]
  - Febrile neutropenia [None]
  - Dyskinesia [None]
  - Parkinsonism [None]
